FAERS Safety Report 4705195-8 (Version None)
Quarter: 2005Q2

REPORT INFORMATION
  Report Type: 
  Country: None (occurrence: None)
  Receive Date: 20050628
  Receipt Date: 20050612
  Transmission Date: 20051028
  Serious: Yes (Hospitalization)
  Sender: FDA-Public Use
  Company Number: 215554

PATIENT
  Age: 76 Year
  Sex: Female

DRUGS (7)
  1. BEVACIZUMAB OR PLACEBO(BEVACIZUMAB OR PLACEBO) PWDR + SOLVENT,INFUSION [Suspect]
     Indication: COLORECTAL CANCER METASTATIC
     Dosage: Q3W, INTRAVENOUS
     Route: 042
     Dates: start: 20040414
  2. CAPECITABINE (CAPECITABINE) [Suspect]
     Indication: COLORECTAL CANCER METASTATIC
     Dosage: 1000 MG/M2, BID, ORAL
     Route: 048
     Dates: start: 20040414
  3. OXALIPLATIN (OXALIPLATIN) [Suspect]
     Indication: COLORECTAL CANCER METASTATIC
     Dosage: 130 MG/M2, Q3W, INTRAVENOUS
     Route: 042
     Dates: start: 20040414
  4. FELODIPINE [Concomitant]
  5. ATENOLOL [Concomitant]
  6. ENOXAPARIN SODIUM [Concomitant]
  7. WARFARIN SODIUM [Concomitant]

REACTIONS (2)
  - COAGULOPATHY [None]
  - INTERNATIONAL NORMALISED RATIO INCREASED [None]
